FAERS Safety Report 9961470 (Version 1)
Quarter: 2014Q1

REPORT INFORMATION
  Report Type: Spontaneous
  Country: US (occurrence: US)
  Receive Date: 20140305
  Receipt Date: 20140305
  Transmission Date: 20141002
  Serious: Yes (Hospitalization)
  Sender: FDA-Public Use
  Company Number: US-NOVOPROD-401474

PATIENT
  Age: 87 Year
  Sex: Female
  Weight: 77.1 kg

DRUGS (1)
  1. VICTOZA [Suspect]
     Indication: TYPE 2 DIABETES MELLITUS
     Dosage: UNK
     Route: 058
     Dates: start: 201401, end: 201401

REACTIONS (2)
  - Dizziness [Recovered/Resolved]
  - Blood glucose decreased [Recovered/Resolved]
